FAERS Safety Report 20766002 (Version 2)
Quarter: 2023Q2

REPORT INFORMATION
  Report Type: Spontaneous
  Country: US (occurrence: US)
  Receive Date: 20220428
  Receipt Date: 20230630
  Transmission Date: 20230721
  Serious: No
  Sender: FDA-Public Use
  Company Number: US-SANOFI-01074140

PATIENT
  Age: 40 Year
  Sex: Female

DRUGS (6)
  1. DUPIXENT [Suspect]
     Active Substance: DUPILUMAB
     Indication: Dermatitis atopic
     Dosage: 300 MG, QOW
     Route: 058
  2. DUPIXENT [Suspect]
     Active Substance: DUPILUMAB
     Indication: Autoimmune disorder
  3. DUPIXENT [Suspect]
     Active Substance: DUPILUMAB
     Indication: Pruritus
  4. DUPIXENT [Suspect]
     Active Substance: DUPILUMAB
     Indication: Embolism venous
  5. DUPIXENT [Suspect]
     Active Substance: DUPILUMAB
     Indication: Dermatitis allergic
  6. DUPIXENT [Suspect]
     Active Substance: DUPILUMAB
     Indication: Asthma

REACTIONS (2)
  - Therapeutic product effective for unapproved indication [Unknown]
  - Product use in unapproved indication [Unknown]
